FAERS Safety Report 4547532-3 (Version None)
Quarter: 2005Q1

REPORT INFORMATION
  Report Type: 
  Country: None (occurrence: None)
  Receive Date: 20050107
  Receipt Date: 20050103
  Transmission Date: 20050727
  Serious: Yes (Disabling, Other)
  Sender: FDA-Public Use
  Company Number: PHRM2005FR00450

PATIENT
  Age: 69 Year
  Sex: Male

DRUGS (1)
  1. NEORAL [Suspect]
     Indication: HEART TRANSPLANT
     Dosage: VARIABLE POSOLOGY
     Route: 048
     Dates: start: 19861115

REACTIONS (5)
  - ACUTE LEUKAEMIA [None]
  - HAEMOGLOBIN DECREASED [None]
  - NEUTROPHIL COUNT DECREASED [None]
  - PANCYTOPENIA [None]
  - PLATELET COUNT DECREASED [None]
